FAERS Safety Report 14964890 (Version 1)
Quarter: 2018Q2

REPORT INFORMATION
  Report Type: Spontaneous
  Country: GR (occurrence: GR)
  Receive Date: 20180601
  Receipt Date: 20180601
  Transmission Date: 20180711
  Serious: Yes (Death)
  Sender: FDA-Public Use
  Company Number: PHHY2018GR013197

PATIENT
  Age: 59 Year
  Sex: Male

DRUGS (2)
  1. AMOXICILLIN+CLAVULANIC ACID [Suspect]
     Active Substance: AMOXICILLIN\CLAVULANIC ACID
     Indication: PRODUCT USED FOR UNKNOWN INDICATION
     Dosage: UNK
     Route: 065
  2. BCG [Concomitant]
     Active Substance: BCG VACCINE
     Indication: TRANSITIONAL CELL CARCINOMA
     Dosage: UNK
     Route: 065

REACTIONS (5)
  - Transitional cell carcinoma [Fatal]
  - Pyrexia [Fatal]
  - Malignant neoplasm progression [Fatal]
  - Dyspnoea [Fatal]
  - Tachycardia [Fatal]
